FAERS Safety Report 8144755-1 (Version None)
Quarter: 2012Q1

REPORT INFORMATION
  Report Type: 
  Country: None (occurrence: None)
  Receive Date: 20120217
  Receipt Date: 20120214
  Transmission Date: 20120608
  Serious: Yes (Other)
  Sender: FDA-Public Use
  Company Number: PR-VERTEX PHARMACEUTICALS INC.-AE-2012-002217

PATIENT
  Sex: Female

DRUGS (2)
  1. INCIVEK [Suspect]
     Indication: HEPATITIS C
     Route: 048
     Dates: start: 20120128, end: 20120206
  2. PEGASYS [Concomitant]
     Indication: HEPATITIS C

REACTIONS (2)
  - DEPRESSION [None]
  - SUICIDAL IDEATION [None]
